FAERS Safety Report 12980979 (Version 1)
Quarter: 2016Q4

REPORT INFORMATION
  Report Type: Report from Study
  Country: GR (occurrence: GR)
  Receive Date: 20161128
  Receipt Date: 20161128
  Transmission Date: 20170207
  Serious: Yes (Hospitalization)
  Sender: FDA-Public Use
  Company Number: GR-ELI_LILLY_AND_COMPANY-GR201611003356

PATIENT
  Age: 55 Year
  Sex: Female
  Weight: 130 kg

DRUGS (1)
  1. CETUXIMAB [Suspect]
     Active Substance: CETUXIMAB
     Indication: COLORECTAL CANCER METASTATIC
     Dosage: 400 MG/M2, UNKNOWN
     Route: 042
     Dates: start: 20160818

REACTIONS (2)
  - Deep vein thrombosis [Not Recovered/Not Resolved]
  - Complication associated with device [Recovered/Resolved with Sequelae]

NARRATIVE: CASE EVENT DATE: 20161006
